FAERS Safety Report 9585919 (Version 1)
Quarter: 2013Q4

REPORT INFORMATION
  Report Type: Spontaneous
  Country: US (occurrence: None)
  Receive Date: 20131002
  Receipt Date: 20131002
  Transmission Date: 20140711
  Serious: Yes (Hospitalization)
  Sender: FDA-Public Use
  Company Number: None

PATIENT
  Age: 70 Year
  Sex: Male

DRUGS (10)
  1. LISINOPRIL [Suspect]
     Indication: HYPERTENSION
     Dosage: 1 DOSE BID ORAL
     Route: 048
  2. LISINOPRIL [Suspect]
     Indication: DIABETES MELLITUS
     Dosage: 1 DOSE BID ORAL
     Route: 048
  3. FLOMAX [Concomitant]
  4. PRILOSEC [Concomitant]
  5. BACTRIM [Concomitant]
  6. ZANTAC [Concomitant]
  7. ATENOLOL [Concomitant]
  8. METFORMIN [Concomitant]
  9. MOTRIN [Concomitant]
  10. ASPIRIN [Concomitant]

REACTIONS (2)
  - Swelling face [None]
  - Pharyngeal oedema [None]
